FAERS Safety Report 4608431-1 (Version None)
Quarter: 2005Q1

REPORT INFORMATION
  Report Type: 
  Country: None (occurrence: None)
  Receive Date: 20050311
  Receipt Date: 20050311
  Transmission Date: 20050727
  Serious: Yes (Hospitalization)
  Sender: FDA-Public Use
  Company Number: None

PATIENT
  Age: 86 Year
  Sex: Female

DRUGS (2)
  1. AMOXICILLIN [Suspect]
     Indication: HELICOBACTER INFECTION
     Dosage: 1000MG BID ORAL
     Route: 048
     Dates: start: 20050112, end: 20050117
  2. CLARITHROMYCIN [Suspect]
     Indication: HELICOBACTER INFECTION
     Dosage: 500MG BID ORAL
     Route: 048
     Dates: start: 20050112, end: 20050116

REACTIONS (4)
  - ABDOMINAL PAIN [None]
  - ADRENAL INSUFFICIENCY [None]
  - DIARRHOEA [None]
  - HYPONATRAEMIA [None]
